FAERS Safety Report 17282752 (Version 1)
Quarter: 2020Q1

REPORT INFORMATION
  Report Type: Spontaneous
  Country: AZ (occurrence: AZ)
  Receive Date: 20200117
  Receipt Date: 20200117
  Transmission Date: 20200409
  Serious: Yes (Death, Other)
  Sender: FDA-Public Use
  Company Number: NVSC2019AZ064116

PATIENT
  Age: 27 Year
  Sex: Male

DRUGS (2)
  1. TRAMADOL. [Suspect]
     Active Substance: TRAMADOL
     Indication: PRODUCT USED FOR UNKNOWN INDICATION
     Route: 065
  2. GLIVEC [Suspect]
     Active Substance: IMATINIB MESYLATE
     Indication: CHRONIC MYELOID LEUKAEMIA
     Dosage: 400 MG, ((4 X 100 MG))
     Route: 065

REACTIONS (8)
  - White blood cell count decreased [Unknown]
  - Intercepted medication error [Unknown]
  - Cardiac failure acute [Fatal]
  - Dependence [Unknown]
  - Chronic myeloid leukaemia [Fatal]
  - Bone pain [Unknown]
  - Malignant neoplasm progression [Fatal]
  - Condition aggravated [Unknown]

NARRATIVE: CASE EVENT DATE: 201911
